FAERS Safety Report 10181514 (Version 1)
Quarter: 2014Q2

REPORT INFORMATION
  Report Type: Spontaneous
  Country: US (occurrence: US)
  Receive Date: 20140519
  Receipt Date: 20140519
  Transmission Date: 20141212
  Serious: Yes (Other)
  Sender: FDA-Public Use
  Company Number: US-GLAXOSMITHKLINE-A1073172A

PATIENT
  Age: 57 Year
  Sex: Female

DRUGS (2)
  1. VALACYCLOVIR [Suspect]
     Indication: PRODUCT USED FOR UNKNOWN INDICATION
  2. VALTREX [Concomitant]

REACTIONS (8)
  - Neoplasm malignant [Unknown]
  - Malaise [Unknown]
  - Drug hypersensitivity [Unknown]
  - Sinusitis [Unknown]
  - Colonoscopy [Unknown]
  - Stress [Unknown]
  - Nasal polyps [Unknown]
  - Drug ineffective [Unknown]
